FAERS Safety Report 17202872 (Version 3)
Quarter: 2020Q1

REPORT INFORMATION
  Report Type: Spontaneous
  Country: FR (occurrence: FR)
  Receive Date: 20191226
  Receipt Date: 20200115
  Transmission Date: 20200409
  Serious: Yes (Hospitalization)
  Sender: FDA-Public Use
  Company Number: FR-NAPPMUNDI-USA-2019-0149468

PATIENT
  Age: 26 Year
  Sex: Female

DRUGS (11)
  1. METHADONE [Suspect]
     Active Substance: METHADONE HYDROCHLORIDE
     Dosage: 5 MG X 2/DAY
     Route: 065
  2. MORPHINE SULFATE (SIMILAR TO NDA 19-516) [Concomitant]
     Active Substance: MORPHINE SULFATE
     Dosage: 200 MG, DAILY
     Route: 048
  3. MORPHINE SULFATE (SIMILAR TO NDA 19-516) [Concomitant]
     Active Substance: MORPHINE SULFATE
     Dosage: TAKING 20 BOLUSES DAILY
     Route: 065
  4. MORPHINE SULFATE (SIMILAR TO NDA 19-516) [Concomitant]
     Active Substance: MORPHINE SULFATE
     Dosage: 0.5 MG, Q1H
     Route: 042
     Dates: start: 201603
  5. OXYCODONE HYDROCHLORIDE (SIMILAR TO NDA 22-272) [Suspect]
     Active Substance: OXYCODONE HYDROCHLORIDE
     Indication: TUMOUR PAIN
     Dosage: AND A 3 MG BOLUS DOSE; TAKING 20 BOLUS DOSE OF OXYCODONE PER DAY
     Route: 040
  6. OXYCODONE HYDROCHLORIDE (SIMILAR TO NDA 22-272) [Suspect]
     Active Substance: OXYCODONE HYDROCHLORIDE
     Dosage: AT DOSES RANGING FROM 0.5 TO 1 MG/H
     Route: 042
     Dates: start: 201603
  7. OXYCODONE HYDROCHLORIDE (SIMILAR TO NDA 22-272) [Suspect]
     Active Substance: OXYCODONE HYDROCHLORIDE
     Dosage: TEN BOLUS DOSES PER DAY BY HERSELF
     Route: 040
  8. METHADONE [Suspect]
     Active Substance: METHADONE HYDROCHLORIDE
     Indication: TUMOUR PAIN
     Dosage: AT A DOSAGE OF THREE TIMES 15 MG/DAY
     Route: 065
  9. METHADONE [Suspect]
     Active Substance: METHADONE HYDROCHLORIDE
     Dosage: INTO TWO DOSES OF 10 MG; WITH UP TO SIX SUPPLEMENTARY DOSES PER DAY OF 3 MG ON DEMAND
     Route: 065
  10. MORPHINE SULFATE (SIMILAR TO NDA 19-516) [Concomitant]
     Active Substance: MORPHINE SULFATE
     Indication: PRODUCT USED FOR UNKNOWN INDICATION
     Dosage: 3 MG, Q1H
     Route: 042
     Dates: start: 2016
  11. MORPHINE SULFATE (SIMILAR TO NDA 19-516) [Concomitant]
     Active Substance: MORPHINE SULFATE
     Dosage: TAKING 10 BOLUSES DAILY
     Route: 065

REACTIONS (10)
  - Malaise [Recovered/Resolved]
  - Drug withdrawal syndrome [Recovered/Resolved]
  - Somnolence [Recovered/Resolved]
  - Abdominal pain [Recovered/Resolved]
  - Social avoidant behaviour [Recovered/Resolved]
  - Hyperhidrosis [Recovered/Resolved]
  - Drug dependence [Recovered/Resolved]
  - Allodynia [Recovered/Resolved]
  - Incorrect product administration duration [Recovered/Resolved]
  - Hyperaesthesia [Recovered/Resolved]
